FAERS Safety Report 26102416 (Version 1)
Quarter: 2025Q4

REPORT INFORMATION
  Report Type: Spontaneous
  Country: JP (occurrence: JP)
  Receive Date: 20251128
  Receipt Date: 20251128
  Transmission Date: 20260118
  Serious: Yes (Life-Threatening, Hospitalization, Other)
  Sender: AIPING PHARMACEUTICAL
  Company Number: JP-AIPING-2025AILIT00207

PATIENT
  Age: 15 Year
  Sex: Female

DRUGS (3)
  1. GUANFACINE HYDROCHLORIDE [Suspect]
     Active Substance: GUANFACINE HYDROCHLORIDE
     Indication: Attention deficit hyperactivity disorder
     Route: 065
  2. GUANFACINE HYDROCHLORIDE [Suspect]
     Active Substance: GUANFACINE HYDROCHLORIDE
     Dosage: ON DAY 57 SECOND OVERDOSE
     Route: 065
  3. GUANFACINE HYDROCHLORIDE [Suspect]
     Active Substance: GUANFACINE HYDROCHLORIDE
     Dosage: ON DAY 110 THIRD OVERDOSE
     Route: 065

REACTIONS (4)
  - Respiratory failure [Recovered/Resolved]
  - Stress cardiomyopathy [Recovered/Resolved]
  - Electrocardiogram QT prolonged [Recovered/Resolved]
  - Overdose [Unknown]
